FAERS Safety Report 16177045 (Version 1)
Quarter: 2019Q2

REPORT INFORMATION
  Report Type: Report from Study
  Country: None (occurrence: DE)
  Receive Date: 20190409
  Receipt Date: 20190409
  Transmission Date: 20190711
  Serious: Yes (Hospitalization)
  Sender: FDA-Public Use
  Company Number: DE-ABBVIE-19K-062-2730851-00

PATIENT
  Age: 48 Year
  Sex: Female
  Weight: 66 kg

DRUGS (4)
  1. HUMIRA [Suspect]
     Active Substance: ADALIMUMAB
     Indication: ANKYLOSING SPONDYLITIS
     Route: 058
     Dates: start: 20180704
  2. TILIDIN [Concomitant]
     Active Substance: NALOXONE HYDROCHLORIDE\TILIDINE HYDROCHLORIDE
     Indication: PAIN
     Route: 048
  3. TOLPERISONE [Concomitant]
     Active Substance: TOLPERISONE
     Indication: FIBROMYALGIA
     Route: 048
     Dates: start: 201801
  4. LIDOCAIN [Concomitant]
     Active Substance: LIDOCAINE
     Indication: FIBROMYALGIA
     Route: 050
     Dates: start: 201801

REACTIONS (2)
  - Joint effusion [Recovering/Resolving]
  - Weight decreased [Recovered/Resolved]

NARRATIVE: CASE EVENT DATE: 201901
